FAERS Safety Report 7280540-0 (Version None)
Quarter: 2011Q1

REPORT INFORMATION
  Report Type: 
  Country: None (occurrence: None)
  Receive Date: 20110208
  Receipt Date: 20110203
  Transmission Date: 20110831
  Serious: Yes (Other)
  Sender: FDA-Public Use
  Company Number: DZ-EISAI INC-E2020-08405-SPO-DZ

PATIENT
  Age: 78 Year
  Sex: Female

DRUGS (4)
  1. CO-APROVEL [Concomitant]
  2. LEVOTHYROX [Concomitant]
  3. BLOPRESS [Concomitant]
  4. ARICEPT [Suspect]
     Indication: AMNESIA
     Route: 048
     Dates: start: 20101201, end: 20110105

REACTIONS (1)
  - THROMBOPHLEBITIS [None]
